FAERS Safety Report 18027245 (Version 1)
Quarter: 2020Q3

REPORT INFORMATION
  Report Type: Spontaneous
  Country: TH (occurrence: TH)
  Receive Date: 20200716
  Receipt Date: 20200716
  Transmission Date: 20201103
  Serious: Yes (Hospitalization)
  Sender: FDA-Public Use
  Company Number: TH-TELIGENT, INC-20200700037

PATIENT
  Age: 30 Year
  Sex: Female

DRUGS (4)
  1. PARACETAMOL [Suspect]
     Active Substance: ACETAMINOPHEN
  2. CODEINE PHOSPHATE [Suspect]
     Active Substance: CODEINE PHOSPHATE
  3. GUAIFENESIN. [Suspect]
     Active Substance: GUAIFENESIN
  4. CLINDAMYCIN PHOSPHATE. [Suspect]
     Active Substance: CLINDAMYCIN PHOSPHATE
     Indication: PHARYNGITIS
     Dosage: A TOTAL OF 5 DOSES

REACTIONS (1)
  - Acute generalised exanthematous pustulosis [Recovered/Resolved]
